FAERS Safety Report 6465193-3 (Version None)
Quarter: 2009Q4

REPORT INFORMATION
  Report Type: 
  Country: None (occurrence: None)
  Receive Date: 20091201
  Receipt Date: 20090428
  Transmission Date: 20100525
  Serious: No
  Sender: FDA-Public Use
  Company Number: US-AMGEN-COG344839

PATIENT
  Sex: Male
  Weight: 90.8 kg

DRUGS (11)
  1. ENBREL [Suspect]
     Indication: RHEUMATOID ARTHRITIS
     Dates: start: 19980101
  2. METHOTREXATE [Concomitant]
  3. PREDNISONE TAB [Concomitant]
  4. HYDROCHLOROTHIAZIDE [Concomitant]
  5. ELAVIL [Concomitant]
  6. METOPROLOL [Concomitant]
  7. NIFEDIPINE [Concomitant]
  8. LISINOPRIL [Concomitant]
  9. FOLIC ACID [Concomitant]
  10. FAMVIR [Concomitant]
  11. PRILOSEC [Concomitant]

REACTIONS (4)
  - BRONCHITIS [None]
  - INJECTION SITE DISCOMFORT [None]
  - PHOTOSENSITIVITY REACTION [None]
  - RASH [None]
